FAERS Safety Report 15669473 (Version 1)
Quarter: 2018Q4

REPORT INFORMATION
  Report Type: Spontaneous
  Country: US (occurrence: US)
  Receive Date: 20181129
  Receipt Date: 20181129
  Transmission Date: 20190205
  Serious: No
  Sender: FDA-Public Use
  Company Number: US-TEVA-032658

PATIENT
  Age: 88 Year
  Sex: Female
  Weight: 58.96 kg

DRUGS (6)
  1. MIRTAZAPINE ORALLY DISINTEGRATING TABLETS 15MG,30MG [Suspect]
     Active Substance: MIRTAZAPINE
     Indication: BACK PAIN
     Dosage: 15 MILLIGRAM DAILY; 15MG, QD (1 HR PRIOR TO BEDTIME)
     Route: 048
     Dates: start: 20080805, end: 20080820
  2. TOPROL XL [Concomitant]
     Active Substance: METOPROLOL SUCCINATE
  3. DETROL LA [Concomitant]
     Active Substance: TOLTERODINE TARTRATE
  4. BENICAR [Concomitant]
     Active Substance: OLMESARTAN MEDOXOMIL
  5. MOBIC [Concomitant]
     Active Substance: MELOXICAM
  6. ZETIA [Concomitant]
     Active Substance: EZETIMIBE

REACTIONS (4)
  - Tremor [Not Recovered/Not Resolved]
  - Somnolence [Not Recovered/Not Resolved]
  - Thinking abnormal [Not Recovered/Not Resolved]
  - Micturition urgency [Not Recovered/Not Resolved]

NARRATIVE: CASE EVENT DATE: 200808
